FAERS Safety Report 8952709 (Version 1)
Quarter: 2012Q4

REPORT INFORMATION
  Report Type: 
  Country: GB (occurrence: GB)
  Receive Date: 20121205
  Receipt Date: 20121205
  Transmission Date: 20130627
  Serious: Yes (Other)
  Sender: FDA-Public Use
  Company Number: GB-B.I. PHARMACEUTICALS,INC./RIDGEFIELD-2012-BI-02180YA

PATIENT
  Age: 69 Year
  Sex: Male
  Weight: 78 kg

DRUGS (7)
  1. TAMSULOSINA [Suspect]
     Indication: BENIGN PROSTATIC HYPERPLASIA
     Dosage: 400 mcg
     Route: 048
     Dates: start: 20121015, end: 20121016
  2. ASPIRIN (ACETYLSALICYLIC ACID) [Concomitant]
     Indication: CARDIOVASCULAR DISORDER
     Dosage: 75 mg
     Route: 048
     Dates: start: 2010
  3. ASPIRIN (ACETYLSALICYLIC ACID) [Concomitant]
     Indication: MYOCARDIAL ISCHAEMIA
  4. FUROSEMIDE (FUROSEMIDE) [Concomitant]
     Indication: HYPERTENSION
     Dosage: 20 mg
     Route: 048
     Dates: start: 2010
  5. METOPROLOL (METOPROLOL) [Concomitant]
     Indication: HYPERTENSION
     Dosage: 50 mg
     Route: 048
     Dates: start: 2010
  6. PERINDOPRIL (PERINDOPRIL) [Concomitant]
     Indication: HYPERTENSION
     Dosage: 4 mg
     Route: 048
     Dates: start: 2010
  7. SIMVASTATIN (SIMVASTATIN) [Concomitant]
     Indication: HYPERCHOLESTEROLAEMIA
     Dosage: 40 mg
     Route: 048
     Dates: start: 2010

REACTIONS (4)
  - Pruritus [Recovered/Resolved]
  - Nasal congestion [Recovered/Resolved]
  - Mouth ulceration [Recovered/Resolved]
  - Lip swelling [Recovered/Resolved]
